FAERS Safety Report 12448487 (Version 8)
Quarter: 2022Q3

REPORT INFORMATION
  Report Type: Report from Study
  Country: TW (occurrence: TW)
  Receive Date: 20160608
  Receipt Date: 20220905
  Transmission Date: 20221027
  Serious: Yes (Death, Hospitalization, Other)
  Sender: FDA-Public Use
  Company Number: TW-ALEXION-A201604084

PATIENT
  Age: 4 Year
  Sex: Male
  Weight: 10 kg

DRUGS (3)
  1. SOLIRIS [Suspect]
     Active Substance: ECULIZUMAB
     Dosage: 300 MG, Q2W
     Route: 042
     Dates: start: 2016
  2. SOLIRIS [Suspect]
     Active Substance: ECULIZUMAB
     Indication: Atypical haemolytic uraemic syndrome
     Dosage: 600 MG, QW
     Route: 042
     Dates: start: 20160130, end: 2016
  3. DIGOXIN [Concomitant]
     Active Substance: DIGOXIN
     Indication: Cardiac failure
     Dosage: 0.04 MG, UNK
     Route: 048

REACTIONS (3)
  - Nephroblastoma [Fatal]
  - Neutropenic sepsis [Fatal]
  - Neisseria infection [Fatal]

NARRATIVE: CASE EVENT DATE: 20160525
